FAERS Safety Report 11685296 (Version 1)
Quarter: 2015Q4

REPORT INFORMATION
  Report Type: Spontaneous
  Country: US (occurrence: None)
  Receive Date: 20151029
  Receipt Date: 20151029
  Transmission Date: 20160304
  Serious: No
  Sender: FDA-Public Use
  Company Number: None

PATIENT
  Age: 53 Year
  Sex: Male
  Weight: 70.31 kg

DRUGS (5)
  1. LEVOXLY [Concomitant]
  2. CEFADROXIL 500 MG [Suspect]
     Active Substance: CEFADROXIL
     Indication: URINARY TRACT INFECTION
     Route: 048
     Dates: start: 20150801, end: 20151002
  3. ASTELIN [Concomitant]
     Active Substance: AZELASTINE HYDROCHLORIDE
  4. BACTRIM [Suspect]
     Active Substance: SULFAMETHOXAZOLE\TRIMETHOPRIM
     Indication: URINARY TRACT INFECTION
     Dosage: 1 PILL
     Route: 048
     Dates: start: 20150827, end: 20150827
  5. PROAIR HFA [Concomitant]
     Active Substance: ALBUTEROL SULFATE

REACTIONS (8)
  - Fatigue [None]
  - Contusion [None]
  - Nausea [None]
  - Pollakiuria [None]
  - Dyspepsia [None]
  - Headache [None]
  - Muscular weakness [None]
  - Tinnitus [None]

NARRATIVE: CASE EVENT DATE: 20150801
